FAERS Safety Report 4519670-2 (Version None)
Quarter: 2004Q4

REPORT INFORMATION
  Report Type: 
  Country: None (occurrence: None)
  Receive Date: 20041206
  Receipt Date: 20041130
  Transmission Date: 20050328
  Serious: Yes (Death)
  Sender: FDA-Public Use
  Company Number: PHBS2004BR16029

PATIENT
  Age: 82 Year
  Sex: Male

DRUGS (8)
  1. EXELON [Suspect]
     Indication: DEMENTIA ALZHEIMER'S TYPE
     Route: 048
  2. DIGOXIN [Concomitant]
     Dosage: 0.25 MG, QD
     Route: 048
  3. SELOKEN [Concomitant]
     Dosage: 100 MG, QD
     Route: 048
  4. AMIODARONE [Concomitant]
     Dosage: 200 MG, QD
  5. ARGININE [Concomitant]
     Dosage: MANIPULATED PRODUCT
  6. CARNITINE [Concomitant]
     Dosage: MANIPULATED PRODUCT
  7. VITAMIN E [Concomitant]
     Dosage: MANIPULATED PRODUCT
  8. ISKEMIL [Concomitant]

REACTIONS (4)
  - BEDRIDDEN [None]
  - CONDITION AGGRAVATED [None]
  - MALAISE [None]
  - PNEUMONIA [None]
